FAERS Safety Report 21933039 (Version 1)
Quarter: 2023Q1

REPORT INFORMATION
  Report Type: Spontaneous
  Country: CN (occurrence: CN)
  Receive Date: 20230131
  Receipt Date: 20230131
  Transmission Date: 20230417
  Serious: Yes (Other)
  Sender: FDA-Public Use
  Company Number: CN-009507513-2301CHN008610

PATIENT
  Age: 73 Year
  Sex: Male

DRUGS (1)
  1. CILASTATIN SODIUM\IMIPENEM [Suspect]
     Active Substance: CILASTATIN SODIUM\IMIPENEM
     Indication: Infection
     Dosage: 1 G, TID
     Route: 041
     Dates: start: 20230108, end: 20230110

REACTIONS (2)
  - Epilepsy [Recovering/Resolving]
  - Hypoxic-ischaemic encephalopathy [Unknown]

NARRATIVE: CASE EVENT DATE: 20230109
